FAERS Safety Report 4297843-4 (Version None)
Quarter: 2004Q1

REPORT INFORMATION
  Report Type: 
  Country: None (occurrence: None)
  Receive Date: 20040213
  Receipt Date: 20040202
  Transmission Date: 20041129
  Serious: No
  Sender: FDA-Public Use
  Company Number: 04P-013-0249340-00

PATIENT
  Age: 82 Year
  Sex: Female

DRUGS (5)
  1. DEPAKENE [Suspect]
     Indication: PSYCHOMOTOR SEIZURES
  2. DIGOXIN [Concomitant]
  3. MOLSIDOMINE [Concomitant]
  4. CARVEDILOL [Concomitant]
  5. VALSARTAN [Concomitant]

REACTIONS (2)
  - HYPONATRAEMIA [None]
  - SYNCOPE [None]
